FAERS Safety Report 11330402 (Version 1)
Quarter: 2015Q3

REPORT INFORMATION
  Report Type: Spontaneous
  Country: US (occurrence: US)
  Receive Date: 20150803
  Receipt Date: 20150803
  Transmission Date: 20151125
  Serious: Yes (Disabling, Other)
  Sender: FDA-Public Use
  Company Number: US-AUROBINDO-AUR-APU-2015-06225

PATIENT

DRUGS (1)
  1. ESCITALOPRAM TABLETS USP 20MG [Suspect]
     Active Substance: ESCITALOPRAM OXALATE
     Indication: PRODUCT USED FOR UNKNOWN INDICATION
     Route: 065

REACTIONS (7)
  - Drug withdrawal syndrome [Unknown]
  - Product substitution issue [Unknown]
  - Decreased interest [Unknown]
  - Depressed mood [Unknown]
  - Activities of daily living impaired [Unknown]
  - Depressive symptom [Unknown]
  - Irritability [Unknown]
